FAERS Safety Report 4476023-3 (Version None)
Quarter: 2004Q4

REPORT INFORMATION
  Report Type: 
  Country: None (occurrence: None)
  Receive Date: 20041012
  Receipt Date: 20041001
  Transmission Date: 20050328
  Serious: Yes (Hospitalization, Other)
  Sender: FDA-Public Use
  Company Number: HQWYE521604OCT04

PATIENT
  Age: 59 Year
  Sex: Female
  Weight: 70.37 kg

DRUGS (1)
  1. INDERAL [Suspect]
     Indication: HYPERTENSION
     Dosage: 20 MG 3X PER 1 DAY, ORAL
     Route: 048
     Dates: start: 19740101

REACTIONS (9)
  - AMNESIA [None]
  - ANXIETY [None]
  - CHEST PAIN [None]
  - DELIRIUM [None]
  - DRUG WITHDRAWAL SYNDROME [None]
  - DYSPNOEA [None]
  - EXTRASYSTOLES [None]
  - POST PROCEDURAL COMPLICATION [None]
  - TREATMENT NONCOMPLIANCE [None]
